FAERS Safety Report 21752574 (Version 1)
Quarter: 2022Q4

REPORT INFORMATION
  Report Type: Spontaneous
  Country: JP (occurrence: JP)
  Receive Date: 20221220
  Receipt Date: 20221220
  Transmission Date: 20230113
  Serious: Yes (Other)
  Sender: FDA-Public Use
  Company Number: JP-CIPLA LTD.-2022JP07295

PATIENT
  Sex: Male

DRUGS (3)
  1. RITONAVIR [Suspect]
     Active Substance: RITONAVIR
     Dosage: UNK
     Route: 064
  2. DARUNAVIR [Suspect]
     Active Substance: DARUNAVIR
     Dosage: UNK
     Route: 064
  3. ABACAVIR\LAMIVUDINE [Suspect]
     Active Substance: ABACAVIR\LAMIVUDINE
     Dosage: UNK
     Route: 064

REACTIONS (2)
  - Anal abscess [Unknown]
  - Foetal exposure during pregnancy [Unknown]

NARRATIVE: CASE EVENT DATE: 20201101
